FAERS Safety Report 5720794-2 (Version None)
Quarter: 2008Q2

REPORT INFORMATION
  Report Type: 
  Country: None (occurrence: None)
  Receive Date: 20080429
  Receipt Date: 20080418
  Transmission Date: 20081010
  Serious: Yes (Hospitalization)
  Sender: FDA-Public Use
  Company Number: US-BAYER-200820493NA

PATIENT
  Sex: Male

DRUGS (1)
  1. AVELOX [Suspect]
     Indication: SINUS HEADACHE
     Dosage: TOTAL DAILY DOSE: 400 MG  UNIT DOSE: 400 MG
     Route: 048
     Dates: start: 20080408

REACTIONS (5)
  - CHEST PAIN [None]
  - FEELING JITTERY [None]
  - HYPERHIDROSIS [None]
  - NERVOUSNESS [None]
  - PALPITATIONS [None]
